FAERS Safety Report 6919762-4 (Version None)
Quarter: 2010Q3

REPORT INFORMATION
  Report Type: 
  Country: None (occurrence: None)
  Receive Date: 20100811
  Receipt Date: 20100728
  Transmission Date: 20110219
  Serious: Yes (Hospitalization, Other)
  Sender: FDA-Public Use
  Company Number: US-ELI_LILLY_AND_COMPANY-US201006007545

PATIENT
  Sex: Female

DRUGS (12)
  1. FORTEO [Suspect]
     Indication: OSTEOPOROSIS
     Dosage: 20 UG, DAILY (1/D)
  2. XANAX [Concomitant]
  3. LEVOTHYROXINE [Concomitant]
  4. LISINOPRIL [Concomitant]
  5. PLAVIX [Concomitant]
  6. LOVASTATIN [Concomitant]
  7. CARVEDILOL [Concomitant]
  8. OMEPRAZOLE [Concomitant]
  9. PAXIL [Concomitant]
  10. SEROQUEL [Concomitant]
  11. AMLODIPINE [Concomitant]
  12. DOCUSATE SODIUM [Concomitant]

REACTIONS (6)
  - HEART RATE IRREGULAR [None]
  - HYPOTENSION [None]
  - INJECTION SITE HAEMATOMA [None]
  - LOSS OF CONSCIOUSNESS [None]
  - MUSCULAR WEAKNESS [None]
  - URINARY TRACT INFECTION [None]
